FAERS Safety Report 11474379 (Version 1)
Quarter: 2015Q3

REPORT INFORMATION
  Report Type: Spontaneous
  Country: US (occurrence: None)
  Receive Date: 20150902
  Receipt Date: 20150902
  Transmission Date: 20151125
  Serious: Yes (Hospitalization)
  Sender: FDA-Public Use
  Company Number: A-US2014-105285

PATIENT
  Age: 53 Year
  Sex: Female

DRUGS (4)
  1. VELETRI [Suspect]
     Active Substance: EPOPROSTENOL
     Indication: PULMONARY ARTERIAL HYPERTENSION
     Dosage: 24.75 NG/KG, PER MIN, INTRAVENOUS
     Route: 042
     Dates: start: 20110825
  2. LETAIRIS [Concomitant]
     Active Substance: AMBRISENTAN
  3. SILDENAFIL (SILDENAFIL CITRATE) [Concomitant]
     Active Substance: SILDENAFIL CITRATE
  4. COUMADIN [Concomitant]
     Active Substance: WARFARIN SODIUM

REACTIONS (2)
  - Pulmonary arterial hypertension [None]
  - Condition aggravated [None]
